FAERS Safety Report 8967625 (Version 1)
Quarter: 2012Q4

REPORT INFORMATION
  Report Type: 
  Country: TW (occurrence: TW)
  Receive Date: 20121217
  Receipt Date: 20121217
  Transmission Date: 20130627
  Serious: Yes (Hospitalization)
  Sender: FDA-Public Use
  Company Number: TW-009507513-1212TWN003977

PATIENT
  Age: 59 Year
  Sex: Female

DRUGS (3)
  1. PEG-INTRON [Suspect]
     Indication: CHRONIC HEPATITIS C
     Dosage: injection, qw
     Dates: start: 201001, end: 2010
  2. RIBAVIRIN [Suspect]
     Dosage: 400 mg, bid
     Dates: start: 201001, end: 2010
  3. RIBAVIRIN [Suspect]
     Dosage: 400 mg, bid

REACTIONS (1)
  - Pustular psoriasis [Recovering/Resolving]
